FAERS Safety Report 6237018-2 (Version None)
Quarter: 2009Q2

REPORT INFORMATION
  Report Type: 
  Country: None (occurrence: None)
  Receive Date: 20090619
  Receipt Date: 20090615
  Transmission Date: 20091009
  Serious: Yes (Death)
  Sender: FDA-Public Use
  Company Number: CA-CELGENEUS-028-21880-09032175

PATIENT
  Sex: Female

DRUGS (2)
  1. REVLIMID [Suspect]
     Route: 048
     Dates: start: 20090301, end: 20090301
  2. REVLIMID [Suspect]
     Route: 048
     Dates: start: 20080212

REACTIONS (2)
  - DISEASE PROGRESSION [None]
  - PULMONARY HYPERTENSION [None]
